FAERS Safety Report 12280587 (Version 4)
Quarter: 2016Q2

REPORT INFORMATION
  Report Type: Spontaneous
  Country: SE (occurrence: SE)
  Receive Date: 20160419
  Receipt Date: 20160531
  Transmission Date: 20160815
  Serious: Yes (Hospitalization)
  Sender: FDA-Public Use
  Company Number: SE-AUROBINDO-AUR-APL-2016-03011

PATIENT
  Age: 71 Year
  Sex: Male

DRUGS (1)
  1. CLOPIDOGREL [Suspect]
     Active Substance: CLOPIDOGREL BISULFATE
     Indication: PLATELET AGGREGATION INHIBITION
     Dosage: 75 MG, UNK
     Route: 048
     Dates: start: 20160109, end: 20160113

REACTIONS (5)
  - Pruritus [Recovered/Resolved with Sequelae]
  - Hypoaesthesia [Recovered/Resolved with Sequelae]
  - Erythema [Recovered/Resolved with Sequelae]
  - Lip swelling [Recovered/Resolved with Sequelae]
  - Product substitution issue [Recovered/Resolved with Sequelae]

NARRATIVE: CASE EVENT DATE: 20160113
